FAERS Safety Report 4783547-8 (Version None)
Quarter: 2005Q3

REPORT INFORMATION
  Report Type: 
  Country: None (occurrence: None)
  Receive Date: 20050928
  Receipt Date: 20050928
  Transmission Date: 20060218
  Serious: Yes (Hospitalization)
  Sender: FDA-Public Use
  Company Number: None

PATIENT
  Age: 85 Year
  Sex: Male
  Weight: 79.3795 kg

DRUGS (1)
  1. TERAZOSIN  1 MG [Suspect]
     Indication: URINARY TRACT OBSTRUCTION
     Dosage: 1-2 MG DAILY PO
     Route: 048
     Dates: start: 20050909, end: 20050915

REACTIONS (6)
  - ATRIAL FIBRILLATION [None]
  - CARDIAC FAILURE HIGH OUTPUT [None]
  - CONDITION AGGRAVATED [None]
  - DYSPNOEA EXERTIONAL [None]
  - OEDEMA PERIPHERAL [None]
  - PALPITATIONS [None]
